FAERS Safety Report 19484080 (Version 55)
Quarter: 2025Q1

REPORT INFORMATION
  Report Type: Report from Study
  Country: IE (occurrence: IE)
  Receive Date: 20210701
  Receipt Date: 20250228
  Transmission Date: 20250408
  Serious: Yes (Other)
  Sender: TAKEDA
  Company Number: IE-SHIRE-IE202030849

PATIENT
  Age: 13 Year
  Sex: Male

DRUGS (66)
  1. IDURSULFASE [Suspect]
     Active Substance: IDURSULFASE
     Indication: Mucopolysaccharidosis II
     Dosage: 30 MILLIGRAM, Q2WEEKS
     Dates: start: 20111027
  2. IDURSULFASE [Suspect]
     Active Substance: IDURSULFASE
     Dosage: 18 MILLIGRAM, 1/WEEK
     Dates: start: 20121027
  3. IDURSULFASE [Suspect]
     Active Substance: IDURSULFASE
     Dosage: 30 MILLIGRAM, Q2WEEKS
     Dates: start: 20150422
  4. IDURSULFASE [Suspect]
     Active Substance: IDURSULFASE
     Dosage: 18 MILLIGRAM, 1/WEEK
     Dates: start: 20210520
  5. IDURSULFASE [Suspect]
     Active Substance: IDURSULFASE
     Dosage: 24 MILLIGRAM, 1/WEEK
     Dates: start: 20210608
  6. IDURSULFASE [Suspect]
     Active Substance: IDURSULFASE
     Dosage: 24 MILLIGRAM, 1/WEEK
     Dates: start: 20210617
  7. IDURSULFASE [Suspect]
     Active Substance: IDURSULFASE
     Dosage: 24 MILLIGRAM, 1/WEEK
     Dates: start: 20210715
  8. IDURSULFASE [Suspect]
     Active Substance: IDURSULFASE
     Dosage: 24 MILLIGRAM, 1/WEEK
     Dates: start: 20210826
  9. IDURSULFASE [Suspect]
     Active Substance: IDURSULFASE
     Dosage: 24 MILLIGRAM, 1/WEEK
     Dates: start: 20210923
  10. IDURSULFASE [Suspect]
     Active Substance: IDURSULFASE
  11. IDURSULFASE [Suspect]
     Active Substance: IDURSULFASE
     Dosage: 30 MILLIGRAM, Q2WEEKS
     Dates: start: 20240215
  12. IDURSULFASE [Suspect]
     Active Substance: IDURSULFASE
     Dosage: 24 MILLIGRAM, Q2WEEKS
  13. IDURSULFASE [Suspect]
     Active Substance: IDURSULFASE
     Dosage: 30 MILLIGRAM, Q2WEEKS
  14. IDURSULFASE [Suspect]
     Active Substance: IDURSULFASE
     Dosage: 18 MILLIGRAM, 1/WEEK
  15. IDURSULFASE [Suspect]
     Active Substance: IDURSULFASE
     Dosage: 18 MILLIGRAM, QD
  16. IDURSULFASE [Suspect]
     Active Substance: IDURSULFASE
     Dosage: 24 MILLIGRAM, Q2WEEKS
  17. IDURSULFASE [Suspect]
     Active Substance: IDURSULFASE
     Dosage: 24 MILLIGRAM, Q2WEEKS
  18. IDURSULFASE [Suspect]
     Active Substance: IDURSULFASE
     Dosage: 24 MILLIGRAM, 1/WEEK
  19. IDURSULFASE [Suspect]
     Active Substance: IDURSULFASE
     Dosage: 30 MILLIGRAM, 1/WEEK
  20. IDURSULFASE [Suspect]
     Active Substance: IDURSULFASE
     Dosage: 24 MILLIGRAM, Q2WEEKS
  21. IDURSULFASE [Suspect]
     Active Substance: IDURSULFASE
     Dosage: 30 MILLIGRAM, Q2WEEKS
  22. IDURSULFASE [Suspect]
     Active Substance: IDURSULFASE
     Dosage: 24 MILLIGRAM, 1/WEEK
  23. IDURSULFASE [Suspect]
     Active Substance: IDURSULFASE
     Dosage: 30 MILLIGRAM, 1/WEEK
  24. IDURSULFASE [Suspect]
     Active Substance: IDURSULFASE
     Dosage: 24 MILLIGRAM, Q2WEEKS
  25. IDURSULFASE [Suspect]
     Active Substance: IDURSULFASE
     Dosage: 24 MILLIGRAM, Q2WEEKS
  26. IDURSULFASE [Suspect]
     Active Substance: IDURSULFASE
     Dosage: 18 MILLIGRAM, 1/WEEK
  27. IDURSULFASE [Suspect]
     Active Substance: IDURSULFASE
     Dosage: 18 MILLIGRAM, 1/WEEK
  28. IDURSULFASE [Suspect]
     Active Substance: IDURSULFASE
     Dosage: 18 MILLIGRAM,1/WEEK
  29. IDURSULFASE [Suspect]
     Active Substance: IDURSULFASE
     Dosage: 24 MILLIGRAM,1/WEEK
  30. IDURSULFASE [Suspect]
     Active Substance: IDURSULFASE
     Dosage: 18 MILLIGRAM, 1/WEEK
  31. IDURSULFASE [Suspect]
     Active Substance: IDURSULFASE
     Dosage: 18 MILLIGRAM, Q2WEEKS
  32. IDURSULFASE [Suspect]
     Active Substance: IDURSULFASE
     Dosage: 24 MILLIGRAM, 1/WEEK
  33. IDURSULFASE [Suspect]
     Active Substance: IDURSULFASE
     Dosage: 18 MILLIGRAM/1/WEEK
  34. IDURSULFASE [Suspect]
     Active Substance: IDURSULFASE
     Dosage: 24 MILLIGRAM, 1/WEEK
  35. IDURSULFASE [Suspect]
     Active Substance: IDURSULFASE
     Dosage: 24 MILLIGRAM, 1/WEEK
  36. IDURSULFASE [Suspect]
     Active Substance: IDURSULFASE
  37. IDURSULFASE [Suspect]
     Active Substance: IDURSULFASE
     Dosage: 24 MILLIGRAM, Q2WEEKS
  38. IDURSULFASE [Suspect]
     Active Substance: IDURSULFASE
     Dosage: 30 MILLIGRAM, Q2WEEKS
  39. IDURSULFASE [Suspect]
     Active Substance: IDURSULFASE
     Dosage: 24 MILLIGRAM, Q2WEEKS
  40. IDURSULFASE [Suspect]
     Active Substance: IDURSULFASE
     Dosage: 30 MILLIGRAM, 1/WEEK
  41. IDURSULFASE [Suspect]
     Active Substance: IDURSULFASE
     Dosage: 24 MILLIGRAM, Q2WEEKS
  42. IDURSULFASE [Suspect]
     Active Substance: IDURSULFASE
     Dosage: 30 MILLIGRAM, Q2WEEKS
  43. IDURSULFASE [Suspect]
     Active Substance: IDURSULFASE
     Dosage: 24 MILLIGRAM, Q2WEEKS
  44. IDURSULFASE [Suspect]
     Active Substance: IDURSULFASE
     Dosage: 30 MILLIGRAM, Q2WEEKS
  45. IDURSULFASE [Suspect]
     Active Substance: IDURSULFASE
     Dosage: 24 MILLIGRAM, Q2WEEKS
  46. IDURSULFASE [Suspect]
     Active Substance: IDURSULFASE
     Dosage: 30 MILLIGRAM, Q2WEEKS
  47. IDURSULFASE [Suspect]
     Active Substance: IDURSULFASE
     Dosage: 24 MILLIGRAM, Q2WEEKS
  48. IDURSULFASE [Suspect]
     Active Substance: IDURSULFASE
  49. IDURSULFASE [Suspect]
     Active Substance: IDURSULFASE
     Dosage: 30 MILLIGRAM, Q2WEEKS
  50. IDURSULFASE [Suspect]
     Active Substance: IDURSULFASE
     Dosage: 24 MILLIGRAM, Q2WEEKS
  51. COVID-19 VACCINE NOS [Suspect]
     Active Substance: COVID-19 VACCINE
     Indication: Product used for unknown indication
  52. MELATONIN [Concomitant]
     Active Substance: MELATONIN
     Dosage: 5 MILLIGRAM, QD
  53. MELATONIN [Concomitant]
     Active Substance: MELATONIN
     Dosage: 6 MILLIGRAM, QD
  54. HEPARIN SODIUM [Concomitant]
     Active Substance: HEPARIN SODIUM
     Dosage: 10 INTERNATIONAL UNIT, 1/WEEK
  55. Zydol [Concomitant]
     Dosage: 5 MILLIGRAM, QD
  56. Zydol [Concomitant]
     Dosage: 5 MILLIGRAM, QD
  57. NEOCLARITYN [Concomitant]
     Active Substance: DESLORATADINE
     Dosage: 5 MILLILITER, QD
  58. SALACTOL [Concomitant]
     Dosage: UNK UNK, QD
  59. XYZAL [Concomitant]
     Active Substance: LEVOCETIRIZINE DIHYDROCHLORIDE
     Dosage: 5 MILLIGRAM, QD
  60. PHENERGAN [Concomitant]
     Active Substance: PROMETHAZINE HYDROCHLORIDE
     Dosage: 10 MILLIGRAM, QD
  61. LORAZEPAM [Concomitant]
     Active Substance: LORAZEPAM
  62. STRATTERA [Concomitant]
     Active Substance: ATOMOXETINE HYDROCHLORIDE
     Dosage: 60 MILLIGRAM, QD
  63. D1000 [Concomitant]
     Dosage: UNK UNK, QD
  64. BETNOVATE [Concomitant]
     Active Substance: BETAMETHASONE
     Dosage: UNK UNK, BID
  65. IBUPROFEN [Concomitant]
     Active Substance: IBUPROFEN
  66. LEVOCETIRIZINE DIHYDROCHLORIDE [Concomitant]
     Active Substance: LEVOCETIRIZINE DIHYDROCHLORIDE

REACTIONS (51)
  - Carpal tunnel syndrome [Not Recovered/Not Resolved]
  - Poor venous access [Recovered/Resolved]
  - Nasopharyngitis [Recovering/Resolving]
  - Dysphagia [Recovered/Resolved]
  - Psychomotor skills impaired [Not Recovered/Not Resolved]
  - Incorrect dose administered [Unknown]
  - Intentional removal of drug delivery system by patient [Recovered/Resolved]
  - Product dose omission issue [Recovered/Resolved]
  - Peripheral coldness [Recovered/Resolved]
  - Feeling hot [Recovered/Resolved]
  - Swelling [Recovered/Resolved]
  - Rash macular [Recovered/Resolved]
  - Joint swelling [Recovered/Resolved]
  - Heart rate abnormal [Recovered/Resolved]
  - Body temperature increased [Recovered/Resolved]
  - Body temperature decreased [Unknown]
  - Incontinence [Not Recovered/Not Resolved]
  - Agitation [Not Recovered/Not Resolved]
  - Accident [Unknown]
  - Bowel movement irregularity [Unknown]
  - Infusion site haemorrhage [Recovering/Resolving]
  - Contusion [Not Recovered/Not Resolved]
  - Swelling [Recovering/Resolving]
  - Muscle rigidity [Not Recovered/Not Resolved]
  - Productive cough [Unknown]
  - Catheter site swelling [Recovered/Resolved]
  - Dermatitis contact [Recovering/Resolving]
  - Respiratory symptom [Recovered/Resolved]
  - COVID-19 [Recovered/Resolved]
  - Hyperhidrosis [Recovered/Resolved]
  - Pallor [Recovered/Resolved]
  - Fall [Not Recovered/Not Resolved]
  - Visual impairment [Recovered/Resolved]
  - Gait disturbance [Not Recovered/Not Resolved]
  - Agitation [Not Recovered/Not Resolved]
  - Weight decreased [Recovered/Resolved]
  - Dyskinesia [Not Recovered/Not Resolved]
  - Device malfunction [Recovered/Resolved]
  - Constipation [Recovered/Resolved]
  - Cellulitis [Recovering/Resolving]
  - Cough [Not Recovered/Not Resolved]
  - Dyspnoea [Unknown]
  - Cyanosis [Recovered/Resolved]
  - Erythema [Recovered/Resolved]
  - Upper respiratory tract infection [Not Recovered/Not Resolved]
  - Scratch [Recovered/Resolved]
  - Rhinitis [Not Recovered/Not Resolved]
  - Device alarm issue [Recovered/Resolved]
  - Device infusion issue [Recovered/Resolved]
  - Incorrect product administration duration [Recovered/Resolved]
  - Inappropriate schedule of product administration [Not Recovered/Not Resolved]

NARRATIVE: CASE EVENT DATE: 20200730
